FAERS Safety Report 21973232 (Version 1)
Quarter: 2023Q1

REPORT INFORMATION
  Report Type: Spontaneous
  Country: US (occurrence: US)
  Receive Date: 20230209
  Receipt Date: 20230209
  Transmission Date: 20230418
  Serious: No
  Sender: FDA-Public Use
  Company Number: US-SA-SAC20221117000634

PATIENT
  Age: 36 Year
  Sex: Female

DRUGS (2)
  1. CERDELGA [Suspect]
     Active Substance: ELIGLUSTAT
     Indication: Gaucher^s disease
     Dosage: 84 MG, BID
     Route: 048
  2. CERDELGA [Suspect]
     Active Substance: ELIGLUSTAT
     Dosage: 2 DF, QD (2 CAPSULES IN THE MORNING DAILY)
     Route: 048

REACTIONS (3)
  - Illness [Unknown]
  - Inappropriate schedule of product administration [Unknown]
  - Off label use [Unknown]
